FAERS Safety Report 24135489 (Version 1)
Quarter: 2024Q3

REPORT INFORMATION
  Report Type: Other
  Country: BE (occurrence: BE)
  Receive Date: 20240725
  Receipt Date: 20240725
  Transmission Date: 20241017
  Serious: Yes (Death, Hospitalization)
  Sender: BIONPHARMA
  Company Number: BE-Bion-013501

PATIENT
  Age: 82 Year
  Sex: Female

DRUGS (4)
  1. POTASSIUM CITRATE [Suspect]
     Active Substance: POTASSIUM CITRATE
     Indication: Hypokalaemia
     Dosage: PER DAY
     Route: 048
  2. PREDNISOLONE [Concomitant]
     Active Substance: PREDNISOLONE
     Indication: Product used for unknown indication
  3. SPIRONOLACTONE [Concomitant]
     Active Substance: SPIRONOLACTONE
     Indication: Product used for unknown indication
  4. POTASSIUM CITRATE [Suspect]
     Active Substance: POTASSIUM CITRATE
     Indication: Hypokalaemia
     Dosage: PER DAY
     Route: 042

REACTIONS (1)
  - Drug ineffective [Fatal]
